FAERS Safety Report 9773391 (Version 1)
Quarter: 2013Q4

REPORT INFORMATION
  Report Type: Spontaneous
  Country: CA (occurrence: CA)
  Receive Date: 20131219
  Receipt Date: 20131219
  Transmission Date: 20140711
  Serious: Yes (Hospitalization)
  Sender: FDA-Public Use
  Company Number: CA-ELI_LILLY_AND_COMPANY-CA201312003809

PATIENT
  Age: 27 Year
  Sex: Male

DRUGS (2)
  1. ZYPREXA [Suspect]
     Indication: ANXIETY
     Dosage: 20 MG, QD
     Route: 065
  2. PEGASYS RBV [Suspect]
     Indication: HEPATITIS C VIRUS TEST POSITIVE
     Dosage: 1 DF, UNKNOWN
     Route: 065

REACTIONS (4)
  - Psychiatric symptom [Unknown]
  - Agitation [Unknown]
  - Influenza like illness [Unknown]
  - Off label use [Unknown]
